FAERS Safety Report 9664819 (Version 2)
Quarter: 2013Q4

REPORT INFORMATION
  Report Type: Report from Study
  Country: JP (occurrence: JP)
  Receive Date: 20131101
  Receipt Date: 20131125
  Transmission Date: 20140711
  Serious: Yes (Death, Other)
  Sender: FDA-Public Use
  Company Number: JP-TAKEDA-2013TJP002352

PATIENT
  Age: 80 Year
  Sex: Male
  Weight: 55 kg

DRUGS (7)
  1. LANSOPRAZOLE [Suspect]
     Indication: PROPHYLAXIS AGAINST GASTROINTESTINAL ULCER
     Dosage: 15 MG, QD
     Route: 048
     Dates: start: 20120925, end: 20130219
  2. BAYASPIRIN [Concomitant]
     Indication: THROMBOSIS PROPHYLAXIS
     Dosage: 100 MG, 1 DAYS
     Route: 048
     Dates: end: 20130219
  3. ADALAT [Concomitant]
     Dosage: 40 MG, 1 DAYS
     Route: 048
  4. MAGLAX [Concomitant]
     Dosage: 250 MG, 1 DAYS
     Route: 048
  5. ARTIST [Concomitant]
     Dosage: 10 MG, 1 DAYS
     Route: 048
  6. EPADEL-S [Concomitant]
     Dosage: 1800 MG, 1 DAYS
     Route: 048
  7. FLUITRAN [Concomitant]
     Dosage: 1 MG, 1 DAYS
     Route: 048

REACTIONS (2)
  - Lung neoplasm malignant [Fatal]
  - Condition aggravated [Fatal]
